FAERS Safety Report 24740009 (Version 1)
Quarter: 2024Q4

REPORT INFORMATION
  Report Type: Spontaneous
  Country: US (occurrence: US)
  Receive Date: 20241216
  Receipt Date: 20241216
  Transmission Date: 20250115
  Serious: No
  Sender: TAIHO ONCOLOGY INC
  Company Number: US-TAIHOP-2024-011968

PATIENT
  Sex: Female

DRUGS (1)
  1. INQOVI [Suspect]
     Active Substance: CEDAZURIDINE\DECITABINE
     Indication: Myelodysplastic syndrome
     Dosage: CYCLE UNKNOWN
     Route: 048
     Dates: start: 20241004

REACTIONS (2)
  - Illness [Unknown]
  - Fatigue [Unknown]
